FAERS Safety Report 22801419 (Version 2)
Quarter: 2023Q4

REPORT INFORMATION
  Report Type: Spontaneous
  Country: US (occurrence: US)
  Receive Date: 20230809
  Receipt Date: 20231001
  Transmission Date: 20240110
  Serious: Yes (Other)
  Sender: FDA-Public Use
  Company Number: US-BRISTOL-MYERS SQUIBB COMPANY-2023-110530

PATIENT
  Age: 73 Year
  Sex: Female
  Weight: 83.91 kg

DRUGS (1)
  1. REVLIMID [Suspect]
     Active Substance: LENALIDOMIDE
     Indication: Plasma cell myeloma
     Dosage: 2WK ON, 2WK OFF
     Route: 048

REACTIONS (5)
  - Fatigue [Unknown]
  - Thrombosis [Recovered/Resolved]
  - Taste disorder [Unknown]
  - Intentional product use issue [Unknown]
  - Laboratory test abnormal [Unknown]
